FAERS Safety Report 16707064 (Version 1)
Quarter: 2019Q3

REPORT INFORMATION
  Report Type: Spontaneous
  Country: US (occurrence: US)
  Receive Date: 20190815
  Receipt Date: 20190815
  Transmission Date: 20191004
  Serious: No
  Sender: FDA-Public Use
  Company Number: US-THERAPEUTICSMD-2019TMD01262

PATIENT
  Age: 57 Year
  Sex: Female
  Weight: 86.17 kg

DRUGS (8)
  1. PROBIOTIC [Concomitant]
     Active Substance: PROBIOTICS NOS
  2. EFFEXOR [Concomitant]
     Active Substance: VENLAFAXINE HYDROCHLORIDE
  3. GLUCOSAMINE [Concomitant]
     Active Substance: GLUCOSAMINE
  4. CALCIUM [Concomitant]
     Active Substance: CALCIUM
  5. VITAMIN D [Concomitant]
     Active Substance: VITAMIN D NOS
  6. BIJUVA [Suspect]
     Active Substance: ESTRADIOL\PROGESTERONE
     Indication: HOT FLUSH
     Dosage: 1 CAPSULES, 1X/DAY AT NIGHT
     Route: 048
     Dates: start: 201904, end: 201905
  7. BIJUVA [Suspect]
     Active Substance: ESTRADIOL\PROGESTERONE
     Indication: VAGINAL HAEMORRHAGE
  8. BIJUVA [Suspect]
     Active Substance: ESTRADIOL\PROGESTERONE
     Indication: BREAST TENDERNESS

REACTIONS (3)
  - Drug ineffective for unapproved indication [Recovered/Resolved]
  - Breast discomfort [Recovered/Resolved]
  - Breast tenderness [Recovered/Resolved]

NARRATIVE: CASE EVENT DATE: 201904
